FAERS Safety Report 8385393 (Version 3)
Quarter: 2015Q1

REPORT INFORMATION
  Report Type: Report from Study
  Country: US (occurrence: US)
  Receive Date: 20120202
  Receipt Date: 20150306
  Transmission Date: 20150721
  Serious: Yes (Death)
  Sender: FDA-Public Use
  Company Number: US-ROCHE-1035684

PATIENT
  Sex: Male

DRUGS (26)
  1. AVASTIN [Suspect]
     Active Substance: BEVACIZUMAB
     Indication: COLON CANCER
     Route: 042
  2. KYTRIL [Concomitant]
     Active Substance: GRANISETRON HYDROCHLORIDE
     Route: 058
  3. ZOFRAN [Concomitant]
     Active Substance: ONDANSETRON HYDROCHLORIDE
  4. ZOLOFT [Concomitant]
     Active Substance: SERTRALINE HYDROCHLORIDE
  5. VITAMIN C [Concomitant]
     Active Substance: ASCORBIC ACID
     Route: 065
  6. 5-FU [Suspect]
     Active Substance: FLUOROURACIL
     Route: 042
     Dates: start: 20040217
  7. TESTOSTERONE. [Concomitant]
     Active Substance: TESTOSTERONE
  8. AMBIEN [Concomitant]
     Active Substance: ZOLPIDEM TARTRATE
  9. 5-FU [Suspect]
     Active Substance: FLUOROURACIL
     Indication: PRODUCT USED FOR UNKNOWN INDICATION
     Route: 042
  10. CPT-11 [Concomitant]
     Active Substance: IRINOTECAN
  11. OXALIPLATIN. [Concomitant]
     Active Substance: OXALIPLATIN
     Route: 042
  12. ATROPINE [Concomitant]
     Active Substance: ATROPINE
     Route: 042
  13. BENICAR [Concomitant]
     Active Substance: OLMESARTAN MEDOXOMIL
     Route: 065
  14. ATIVAN [Concomitant]
     Active Substance: LORAZEPAM
     Route: 065
  15. AVASTIN [Suspect]
     Active Substance: BEVACIZUMAB
     Route: 042
  16. ALOXI [Concomitant]
     Active Substance: PALONOSETRON HYDROCHLORIDE
     Route: 042
  17. DURAGESIC [Concomitant]
     Active Substance: FENTANYL
  18. ARANESP [Concomitant]
     Active Substance: DARBEPOETIN ALFA
     Route: 042
  19. ATENOLOL. [Concomitant]
     Active Substance: ATENOLOL
     Route: 042
  20. IRINOTECAN [Concomitant]
     Active Substance: IRINOTECAN
     Route: 042
  21. DECADRON [Concomitant]
     Active Substance: DEXAMETHASONE
     Route: 042
  22. NEULASTA [Concomitant]
     Active Substance: PEGFILGRASTIM
     Route: 058
  23. FERROUS SULFATE [Concomitant]
     Active Substance: FERROUS SULFATE\FERROUS SULFATE, DRIED
     Route: 048
  24. LEUCOVORIN [Concomitant]
     Active Substance: LEUCOVORIN
     Route: 042
  25. FOLIC ACID. [Concomitant]
     Active Substance: FOLIC ACID
     Route: 042
  26. COMPAZINE [Concomitant]
     Active Substance: PROCHLORPERAZINE MALEATE

REACTIONS (34)
  - Disease progression [Fatal]
  - Memory impairment [Unknown]
  - Dyspnoea [Unknown]
  - Rash [Recovered/Resolved]
  - Vomiting [Unknown]
  - Diarrhoea [Unknown]
  - Anaemia [Unknown]
  - Pruritus generalised [Unknown]
  - Fatigue [Unknown]
  - Chest pain [Unknown]
  - Raynaud^s phenomenon [Unknown]
  - Abdominal pain [Unknown]
  - Dyspepsia [Unknown]
  - Depression [Unknown]
  - Neutropenia [Unknown]
  - Temperature intolerance [Unknown]
  - Abdominal discomfort [Unknown]
  - Blood pressure increased [Recovered/Resolved]
  - Neuropathy peripheral [Unknown]
  - Headache [Recovered/Resolved]
  - Arthralgia [Recovering/Resolving]
  - Nausea [Recovered/Resolved]
  - Dizziness [Unknown]
  - Musculoskeletal pain [Unknown]
  - Myalgia [Unknown]
  - Oral pain [Recovered/Resolved]
  - Hypoaesthesia [Unknown]
  - Constipation [Unknown]
  - Palpitations [Recovered/Resolved]
  - Dysphagia [Unknown]
  - Paraesthesia [Unknown]
  - Hot flush [Unknown]
  - Gingival swelling [Recovered/Resolved]
  - Night sweats [Recovered/Resolved]
